FAERS Safety Report 20040927 (Version 1)
Quarter: 2021Q4

REPORT INFORMATION
  Report Type: Spontaneous
  Country: US (occurrence: US)
  Receive Date: 20211107
  Receipt Date: 20211107
  Transmission Date: 20220304
  Serious: Yes (Other)
  Sender: FDA-Public Use
  Company Number: US-JNJFOC-20211050636

PATIENT
  Age: 44 Year
  Sex: Female
  Weight: 63.560 kg

DRUGS (3)
  1. INVEGA SUSTENNA [Suspect]
     Active Substance: PALIPERIDONE PALMITATE
     Indication: Schizophrenia
     Route: 030
     Dates: start: 2013, end: 202108
  2. INVEGA SUSTENNA [Suspect]
     Active Substance: PALIPERIDONE PALMITATE
  3. INVEGA SUSTENNA [Suspect]
     Active Substance: PALIPERIDONE PALMITATE

REACTIONS (7)
  - Arrhythmia [Unknown]
  - Oculogyric crisis [Unknown]
  - Muscle twitching [Unknown]
  - Drug hypersensitivity [Unknown]
  - Weight increased [Unknown]
  - Akathisia [Unknown]
  - Musculoskeletal stiffness [Unknown]
